FAERS Safety Report 19835294 (Version 1)
Quarter: 2021Q3

REPORT INFORMATION
  Report Type: Spontaneous
  Country: DE (occurrence: DE)
  Receive Date: 20210915
  Receipt Date: 20210915
  Transmission Date: 20211014
  Serious: Yes (Hospitalization, Congenital Anomaly, Other)
  Sender: FDA-Public Use
  Company Number: DE-ACCORD-238528

PATIENT
  Age: 10 Month
  Sex: Male
  Weight: 3.34 kg

DRUGS (5)
  1. OMEPRAZOLE. [Concomitant]
     Active Substance: OMEPRAZOLE
     Dosage: 20(MG/D (BEI BEDARF) )/ IF REQUIRED
     Route: 064
  2. FOLIC ACID. [Concomitant]
     Active Substance: FOLIC ACID
     Route: 064
     Dates: start: 20200104, end: 20200909
  3. BOOSTRIX [Concomitant]
     Active Substance: TETANUS TOXOID, REDUCED DIPHTHERIA TOXOID AND ACELLULAR PERTUSSIS VACCINE, ADSORBED ANTIGENS
     Route: 064
     Dates: start: 20200820, end: 20200820
  4. QUETIAPINE RETARD [Suspect]
     Active Substance: QUETIAPINE
     Dosage: 300 (MG/D )/ INITIAL 200MG DAILY, DOSAGE INCREASED TO 300MG DAILY
     Route: 064
     Dates: start: 20200104, end: 20201012
  5. ESCITALOPRAM [Suspect]
     Active Substance: ESCITALOPRAM OXALATE
     Dosage: 10 (MG/D)
     Route: 064

REACTIONS (2)
  - Foetal exposure during pregnancy [Unknown]
  - Cleft lip and palate [Recovered/Resolved with Sequelae]
